FAERS Safety Report 6249052-7 (Version None)
Quarter: 2009Q2

REPORT INFORMATION
  Report Type: 
  Country: None (occurrence: None)
  Receive Date: 20090625
  Receipt Date: 20090609
  Transmission Date: 20091009
  Serious: Yes (Other)
  Sender: FDA-Public Use
  Company Number: 2009-197308-NL

PATIENT
  Age: 42 Year
  Sex: Female

DRUGS (3)
  1. NUVARING [Suspect]
     Indication: CONTRACEPTION
     Dates: start: 20081001
  2. SYNTHROID [Concomitant]
  3. LISINOPRIL [Concomitant]

REACTIONS (5)
  - DEEP VEIN THROMBOSIS [None]
  - MUSCLE SWELLING [None]
  - MYALGIA [None]
  - OEDEMA PERIPHERAL [None]
  - PAIN IN EXTREMITY [None]
